FAERS Safety Report 9022078 (Version 1)
Quarter: 2013Q1

REPORT INFORMATION
  Report Type: Spontaneous
  Country: US (occurrence: US)
  Receive Date: 20130118
  Receipt Date: 20130118
  Transmission Date: 20140127
  Serious: Yes (Death)
  Sender: FDA-Public Use
  Company Number: US-GLAXOSMITHKLINE-A1008756A

PATIENT
  Age: 44 Year
  Sex: Male

DRUGS (13)
  1. VOTRIENT [Suspect]
     Indication: PRODUCT USED FOR UNKNOWN INDICATION
     Dosage: 200MG SEE DOSAGE TEXT
     Route: 048
  2. ATIVAN [Concomitant]
  3. MEDROL (PAK) [Concomitant]
  4. MS CONTIN [Concomitant]
  5. REMERON [Concomitant]
  6. ROXICODONE [Concomitant]
  7. LOVENOX [Concomitant]
  8. REGLAN [Concomitant]
  9. CALCITROL [Concomitant]
  10. ALBUTEROL [Concomitant]
  11. FLOMAX [Concomitant]
  12. TUSSIN [Concomitant]
  13. MENS FORMULA MULTIVITAMIN [Concomitant]

REACTIONS (1)
  - Death [Fatal]
